FAERS Safety Report 5075057-8 (Version None)
Quarter: 2006Q3

REPORT INFORMATION
  Report Type: 
  Country: None (occurrence: None)
  Receive Date: 20060809
  Receipt Date: 20060807
  Transmission Date: 20061208
  Serious: No
  Sender: FDA-Public Use
  Company Number: US-RB-3689-2006

PATIENT
  Sex: Male

DRUGS (2)
  1. SUBOXONE [Suspect]
  2. ALPRAZOLAM [Concomitant]

REACTIONS (1)
  - CONVULSION [None]
